FAERS Safety Report 8688544 (Version 3)
Quarter: 2013Q1

REPORT INFORMATION
  Report Type: Spontaneous
  Country: US (occurrence: US)
  Receive Date: 20120727
  Receipt Date: 20130315
  Transmission Date: 20140127
  Serious: No
  Sender: FDA-Public Use
  Company Number: US-ASTRAZENECA-2011SE68318

PATIENT
  Age: 56 Year
  Sex: Male

DRUGS (6)
  1. SEROQUEL [Suspect]
     Indication: BIPOLAR DISORDER
     Route: 048
  2. SEROQUEL [Suspect]
     Indication: AFFECTIVE DISORDER
     Route: 048
  3. SEROQUEL [Suspect]
     Indication: BIPOLAR DISORDER
     Route: 048
  4. SEROQUEL [Suspect]
     Indication: AFFECTIVE DISORDER
     Route: 048
  5. SEROQUEL [Suspect]
     Indication: BIPOLAR DISORDER
     Route: 048
  6. SEROQUEL [Suspect]
     Indication: AFFECTIVE DISORDER
     Route: 048

REACTIONS (9)
  - Anxiety [Unknown]
  - Bipolar disorder [Unknown]
  - Depression [Unknown]
  - Back pain [Unknown]
  - Malaise [Unknown]
  - Mental disorder [Unknown]
  - Insomnia [Unknown]
  - Drug dose omission [Unknown]
  - Intentional drug misuse [Unknown]
